FAERS Safety Report 5044783-9 (Version None)
Quarter: 2006Q3

REPORT INFORMATION
  Report Type: 
  Country: None (occurrence: None)
  Receive Date: 20060707
  Receipt Date: 20060531
  Transmission Date: 20061208
  Serious: Yes (Death)
  Sender: FDA-Public Use
  Company Number: 2006AP02437

PATIENT
  Age: 13303 Day
  Sex: Male

DRUGS (14)
  1. CRESTOR [Suspect]
     Indication: TYPE IIA HYPERLIPIDAEMIA
     Route: 048
     Dates: start: 20051201, end: 20051215
  2. CRESTOR [Suspect]
     Route: 048
     Dates: start: 20051216, end: 20060126
  3. CRESTOR [Suspect]
     Route: 048
     Dates: start: 20060127, end: 20060309
  4. CRESTOR [Suspect]
     Route: 048
     Dates: start: 20060310, end: 20060525
  5. CHOLEBRINE [Concomitant]
     Indication: TYPE IIA HYPERLIPIDAEMIA
     Dosage: STARTED BEFORE CRESTOR
     Route: 048
     Dates: end: 20060525
  6. LASIX [Concomitant]
     Indication: CARDIAC FAILURE
     Dosage: STARTED BEFORE CRESTOR
     Route: 048
     Dates: end: 20060525
  7. ALDACTONE [Concomitant]
     Indication: CARDIAC FAILURE
     Dosage: STARTED BEFORE CRESTOR
     Route: 048
     Dates: end: 20060525
  8. NU-LOTAN [Concomitant]
     Indication: CARDIAC FAILURE
     Dosage: STARTED BEFORE CRESTOR
     Route: 048
     Dates: end: 20060525
  9. ARTIST [Concomitant]
     Indication: CARDIAC FAILURE
     Dosage: STARTED BEFORE CRESTOR
     Route: 048
     Dates: end: 20060525
  10. PANALDINE [Concomitant]
     Indication: ANGINA PECTORIS
     Dosage: STARTED BEFORE CRESTOR
     Route: 048
     Dates: end: 20060525
  11. ISOSORBIDE MONONITRATE [Concomitant]
     Indication: ANGINA PECTORIS
     Dosage: STARTED BEFORE CRESTOR
     Route: 048
     Dates: end: 20060525
  12. ASPIRIN [Concomitant]
     Indication: ANGINA PECTORIS
     Dosage: STARTED BEFORE CRESTOR
     Route: 048
     Dates: end: 20060525
  13. GASTER D [Concomitant]
     Indication: REFLUX OESOPHAGITIS
     Dosage: STARTED BEFORE CRESTOR
     Route: 048
     Dates: end: 20060525
  14. LIPITOR [Concomitant]
     Indication: TYPE IIA HYPERLIPIDAEMIA

REACTIONS (1)
  - ACUTE MYOCARDIAL INFARCTION [None]
